FAERS Safety Report 6990828-6 (Version None)
Quarter: 2010Q3

REPORT INFORMATION
  Report Type: 
  Country: None (occurrence: None)
  Receive Date: 20100916
  Receipt Date: 20081024
  Transmission Date: 20110219
  Serious: Yes (Other)
  Sender: FDA-Public Use
  Company Number: HQWYE753103AUG04

PATIENT
  Sex: Female
  Weight: 69.46 kg

DRUGS (5)
  1. PREMARIN [Suspect]
     Dosage: UNKNOWN
     Dates: start: 19931101, end: 19950201
  2. MEDROXYPROGESTERONE [Suspect]
     Dosage: UNKNOWN
     Dates: start: 19940701, end: 19950801
  3. PREMPHASE 14/14 [Suspect]
     Dosage: UNKNOWN
     Dates: start: 19950101, end: 19960101
  4. PROVERA [Suspect]
     Dosage: UNKNOWN
     Dates: start: 19931101, end: 19940801
  5. ESTRADERM [Suspect]
     Dosage: UNKNOWN
     Dates: start: 19950301, end: 19950801

REACTIONS (1)
  - BREAST CANCER [None]
